FAERS Safety Report 7340459-3 (Version None)
Quarter: 2011Q1

REPORT INFORMATION
  Report Type: 
  Country: None (occurrence: None)
  Receive Date: 20110309
  Receipt Date: 20110226
  Transmission Date: 20110831
  Serious: Yes (Other)
  Sender: FDA-Public Use
  Company Number: US-SANOFI-AVENTIS-2011SA012769

PATIENT
  Age: 83 Year
  Sex: Male

DRUGS (3)
  1. MULTAQ [Suspect]
     Route: 048
     Dates: start: 20100416
  2. AMIODARONE [Concomitant]
     Dates: end: 20100401
  3. AMIODARONE [Concomitant]

REACTIONS (2)
  - ATRIAL FIBRILLATION [None]
  - RASH [None]
